FAERS Safety Report 10663831 (Version 3)
Quarter: 2017Q2

REPORT INFORMATION
  Report Type: Spontaneous
  Country: US (occurrence: US)
  Receive Date: 20141219
  Receipt Date: 20170404
  Transmission Date: 20170829
  Serious: Yes (Death, Other)
  Sender: FDA-Public Use
  Company Number: US-009507513-1412USA008560

PATIENT
  Age: 67 Year
  Sex: Female

DRUGS (22)
  1. SINGULAIR [Concomitant]
     Active Substance: MONTELUKAST SODIUM
     Route: 048
  2. OMEGA-3 ACIDS [Concomitant]
     Active Substance: OMEGA-3 FATTY ACIDS
  3. DONEPEZIL HYDROCHLORIDE. [Concomitant]
     Active Substance: DONEPEZIL HYDROCHLORIDE
  4. CALCIUM (UNSPECIFIED) [Concomitant]
     Active Substance: CALCIUM
  5. VITAMINS (UNSPECIFIED) [Concomitant]
     Active Substance: VITAMINS
     Dosage: 1 DAILY
  6. BACOPA [Concomitant]
  7. NOXAFIL [Suspect]
     Active Substance: POSACONAZOLE
     Dosage: 300 MG DAILY
     Route: 048
  8. LYRICA [Concomitant]
     Active Substance: PREGABALIN
  9. BIOTAN BASOSAN [Concomitant]
  10. DIMETHYL SULFONE (+) GLUCOSAMINE [Concomitant]
  11. NOXAFIL [Suspect]
     Active Substance: POSACONAZOLE
     Indication: BRONCHOPULMONARY ASPERGILLOSIS
     Dosage: 100 MG (1 TABLET) TWICE A DAY
     Route: 048
     Dates: start: 201411, end: 20141216
  12. ESCITALOPRAM [Concomitant]
     Active Substance: ESCITALOPRAM OXALATE
  13. LEVOTHYROXINE SODIUM. [Concomitant]
     Active Substance: LEVOTHYROXINE SODIUM
     Route: 048
  14. CRANBERRY. [Concomitant]
     Active Substance: CRANBERRY
     Route: 048
  15. TEA [Concomitant]
     Active Substance: TEA LEAF
  16. ASTEPRO [Concomitant]
     Active Substance: AZELASTINE HYDROCHLORIDE
  17. AVONEX [Concomitant]
     Active Substance: INTERFERON BETA-1A
  18. TYLENOL [Concomitant]
     Active Substance: ACETAMINOPHEN
  19. SCIENCE BASED HEALTH MACULAR PROTECT [Concomitant]
  20. GAMUNEX [Concomitant]
     Active Substance: HUMAN IMMUNOGLOBULIN G
     Route: 042
  21. BENADRYL [Concomitant]
     Active Substance: DIPHENHYDRAMINE HYDROCHLORIDE
  22. ASHWAGANDHA [Concomitant]
     Active Substance: HERBALS

REACTIONS (3)
  - Death [Fatal]
  - Blister rupture [Not Recovered/Not Resolved]
  - Blister [Not Recovered/Not Resolved]

NARRATIVE: CASE EVENT DATE: 20141213
